FAERS Safety Report 4950422-5 (Version None)
Quarter: 2006Q1

REPORT INFORMATION
  Report Type: 
  Country: None (occurrence: None)
  Receive Date: 20060315
  Receipt Date: 20060301
  Transmission Date: 20060701
  Serious: Yes (Hospitalization)
  Sender: FDA-Public Use
  Company Number: CLOF-10201

PATIENT
  Age: 13 Year
  Sex: Female

DRUGS (6)
  1. CLOFARABINE [Suspect]
     Indication: ACUTE LYMPHOCYTIC LEUKAEMIA
     Dosage: 52 MG/M2 QD X 5 IV
     Route: 042
     Dates: start: 20060110, end: 20060114
  2. AMBISOME [Concomitant]
  3. CEFTAZIDIME [Concomitant]
  4. VANCOMYCIN [Concomitant]
  5. AMIKACIN [Concomitant]
  6. CIPROFLOXACIN [Concomitant]

REACTIONS (6)
  - ACUTE LYMPHOCYTIC LEUKAEMIA [None]
  - BRONCHOPULMONARY ASPERGILLOSIS [None]
  - FEBRILE BONE MARROW APLASIA [None]
  - MALIGNANT NEOPLASM PROGRESSION [None]
  - PLEURAL EFFUSION [None]
  - PNEUMONIA [None]
